FAERS Safety Report 6526435-9 (Version None)
Quarter: 2010Q1

REPORT INFORMATION
  Report Type: 
  Country: None (occurrence: None)
  Receive Date: 20100105
  Receipt Date: 20091224
  Transmission Date: 20100710
  Serious: Yes (Hospitalization, Other)
  Sender: FDA-Public Use
  Company Number: US-ELI_LILLY_AND_COMPANY-US200912006201

PATIENT
  Age: 58 Year
  Sex: Female

DRUGS (18)
  1. FORTEO [Suspect]
     Indication: OSTEOPOROSIS
     Dosage: 20 UG, DAILY (1/D)
  2. NEXIUM [Concomitant]
     Dosage: 40 MG, DAILY (1/D)
  3. PROPRANOLOL [Concomitant]
     Dosage: 20 MG, 2/D
  4. AMLODIPINE BESYLATE [Concomitant]
     Dosage: 2.5 MG, EACH MORNING
  5. AMLODIPINE BESYLATE [Concomitant]
     Dosage: 0.5 MG, EACH EVENING
  6. HYDROXYZINE PAMOATE [Concomitant]
     Dosage: 25 MG, EACH EVENING
  7. GABAPENTIN [Concomitant]
     Dosage: 300 MG, EACH EVENING
  8. ALPRAZOLAM [Concomitant]
     Dosage: 0.25 MG, DAILY (1/D)
  9. DETROL LA [Concomitant]
     Dosage: UNK, DAILY (1/D)
  10. TRAMADOL [Concomitant]
     Dosage: 50 MG, EACH EVENING
  11. LORATADINE [Concomitant]
     Dosage: 10 MG, DAILY (1/D)
  12. LUNESTA [Concomitant]
     Indication: SLEEP DISORDER
     Dosage: 2 MG, EACH EVENING
  13. VITAMIN D [Concomitant]
     Dosage: UNK, 2/W
  14. ADVIL LIQUI-GELS [Concomitant]
  15. TYLENOL (CAPLET) [Concomitant]
     Dosage: UNK, AS NEEDED
  16. MYLANTA [Concomitant]
  17. TUMS [Concomitant]
     Dosage: UNK, AS NEEDED
  18. IMODIUM [Concomitant]
     Indication: DIARRHOEA
     Dosage: UNK, AS NEEDED

REACTIONS (12)
  - ABDOMINAL DISCOMFORT [None]
  - CEREBROVASCULAR ACCIDENT [None]
  - DYSPNOEA [None]
  - GASTROINTESTINAL HAEMORRHAGE [None]
  - HEMIPARESIS [None]
  - INJECTION SITE HAEMATOMA [None]
  - INJECTION SITE HAEMORRHAGE [None]
  - INJECTION SITE PAIN [None]
  - JOINT SWELLING [None]
  - MALAISE [None]
  - NODULE ON EXTREMITY [None]
  - PULMONARY EMBOLISM [None]
